FAERS Safety Report 7997609-5 (Version None)
Quarter: 2011Q4

REPORT INFORMATION
  Report Type: 
  Country: None (occurrence: None)
  Receive Date: 20111221
  Receipt Date: 20111213
  Transmission Date: 20120403
  Serious: Yes (Hospitalization, Congenital Anomaly)
  Sender: FDA-Public Use
  Company Number: FR-JNJFOC-20111205434

PATIENT
  Sex: Male
  Weight: 3.4 kg

DRUGS (7)
  1. SERTRALINE HYDROCHLORIDE [Concomitant]
     Indication: FOETAL EXPOSURE DURING PREGNANCY
     Route: 064
     Dates: start: 20100922, end: 20100930
  2. EFFEXOR [Concomitant]
     Indication: FOETAL EXPOSURE DURING PREGNANCY
     Route: 064
     Dates: end: 20100922
  3. RISPERDAL [Suspect]
     Indication: FOETAL EXPOSURE DURING PREGNANCY
     Dosage: 7 WEEKS OF AMENORRHEA
     Route: 064
     Dates: end: 20100922
  4. LOXAPINE HCL [Suspect]
     Indication: FOETAL EXPOSURE DURING PREGNANCY
     Route: 064
     Dates: start: 20110418, end: 20110426
  5. OXAZEPAM [Suspect]
     Indication: FOETAL EXPOSURE DURING PREGNANCY
     Route: 064
     Dates: start: 20110101, end: 20110426
  6. RISPERDAL [Suspect]
     Route: 064
     Dates: start: 20110101, end: 20110426
  7. ABILIFY [Concomitant]
     Indication: FOETAL EXPOSURE DURING PREGNANCY
     Route: 064
     Dates: start: 20100922, end: 20100930

REACTIONS (2)
  - FEEDING DISORDER NEONATAL [None]
  - ATRIAL SEPTAL DEFECT [None]
